FAERS Safety Report 10010849 (Version 1)
Quarter: 2014Q1

REPORT INFORMATION
  Report Type: Spontaneous
  Country: GB (occurrence: GB)
  Receive Date: 20140314
  Receipt Date: 20140314
  Transmission Date: 20141002
  Serious: Yes (Other)
  Sender: FDA-Public Use
  Company Number: GB-SA-2014SA030360

PATIENT
  Age: 48 Year
  Sex: Male

DRUGS (8)
  1. FLUOXETINE [Suspect]
     Indication: PRODUCT USED FOR UNKNOWN INDICATION
     Route: 048
  2. CLOPIDOGREL BISULFATE [Suspect]
     Indication: PRODUCT USED FOR UNKNOWN INDICATION
     Route: 048
  3. CHAMPIX [Suspect]
     Indication: PRODUCT USED FOR UNKNOWN INDICATION
     Dosage: TITRATION PACK.
     Route: 048
  4. ASPIRIN [Suspect]
     Indication: PRODUCT USED FOR UNKNOWN INDICATION
     Dosage: DOSAGE TEXT: COMMENCED PRIOR TO APRIL 2013.
     Route: 048
  5. ATORVASTATIN [Concomitant]
     Route: 065
  6. BISOPROLOL [Concomitant]
     Route: 065
  7. LANSOPRAZOLE [Concomitant]
     Route: 065
  8. LOSARTAN [Concomitant]
     Route: 065

REACTIONS (4)
  - Urinary tract infection [Unknown]
  - Pyrexia [Unknown]
  - Haematuria [Unknown]
  - Myalgia [Unknown]
